FAERS Safety Report 7430045-9 (Version None)
Quarter: 2011Q2

REPORT INFORMATION
  Report Type: 
  Country: None (occurrence: None)
  Receive Date: 20110421
  Receipt Date: 20110414
  Transmission Date: 20111010
  Serious: Yes (Hospitalization)
  Sender: FDA-Public Use
  Company Number: US-PURDUE-USA-2011-0066962

PATIENT
  Sex: Female

DRUGS (2)
  1. MS CONTIN [Suspect]
     Indication: PRODUCT USED FOR UNKNOWN INDICATION
     Dosage: UNK
     Route: 048
  2. REBIF [Suspect]
     Indication: PRODUCT USED FOR UNKNOWN INDICATION
     Dosage: 44 MCG, 3/WEEK
     Route: 058
     Dates: start: 20040917, end: 20100731

REACTIONS (6)
  - MULTIPLE DRUG OVERDOSE ACCIDENTAL [None]
  - OCULAR ICTERUS [None]
  - LIVER DISORDER [None]
  - YELLOW SKIN [None]
  - NAUSEA [None]
  - DIARRHOEA [None]
